FAERS Safety Report 4698293-9 (Version None)
Quarter: 2005Q2

REPORT INFORMATION
  Report Type: 
  Country: None (occurrence: None)
  Receive Date: 20050621
  Receipt Date: 20050601
  Transmission Date: 20051028
  Serious: Yes (Hospitalization)
  Sender: FDA-Public Use
  Company Number: B0383109A

PATIENT
  Age: 74 Year
  Sex: Female

DRUGS (6)
  1. LANOXIN [Suspect]
  2. NSAID (NSAID) [Suspect]
  3. LISINOPRIL [Suspect]
  4. HYDROCHLOROTHIAZIDE [Concomitant]
  5. ASPIRIN [Concomitant]
  6. GARLIC [Concomitant]

REACTIONS (15)
  - ATRIOVENTRICULAR BLOCK COMPLETE [None]
  - BLOOD PRESSURE INCREASED [None]
  - BRADYARRHYTHMIA [None]
  - BRADYCARDIA [None]
  - CONFUSIONAL STATE [None]
  - CONTUSION [None]
  - DEHYDRATION [None]
  - DISORIENTATION [None]
  - ELECTROCARDIOGRAM ST SEGMENT DEPRESSION [None]
  - FALL [None]
  - HYPOVOLAEMIA [None]
  - MALAISE [None]
  - OVERDOSE [None]
  - RENAL IMPAIRMENT [None]
  - VOMITING [None]
